FAERS Safety Report 6028845-5 (Version None)
Quarter: 2009Q1

REPORT INFORMATION
  Report Type: 
  Country: None (occurrence: None)
  Receive Date: 20090106
  Receipt Date: 20081222
  Transmission Date: 20090719
  Serious: Yes (Hospitalization)
  Sender: FDA-Public Use
  Company Number: FR-TEVA-183361ISR

PATIENT
  Age: 84 Year
  Sex: Male

DRUGS (5)
  1. BUDESONIDE [Suspect]
  2. ACETYLSALICYLATE LYSINE [Suspect]
     Route: 048
     Dates: end: 20081030
  3. STALEVO 100 [Concomitant]
  4. FORMOTEROL FUMARATE [Concomitant]
  5. BUDESONIDE [Concomitant]

REACTIONS (2)
  - BRONCHOPNEUMOPATHY [None]
  - SUBDURAL HAEMATOMA [None]
